FAERS Safety Report 10222285 (Version 1)
Quarter: 2014Q2

REPORT INFORMATION
  Report Type: Spontaneous
  Country: PL (occurrence: PL)
  Receive Date: 20140606
  Receipt Date: 20140606
  Transmission Date: 20141212
  Serious: Yes (Other)
  Sender: FDA-Public Use
  Company Number: PL-VIIV HEALTHCARE LIMITED-B1000924A

PATIENT
  Age: 59 Year
  Sex: Male

DRUGS (2)
  1. KIVEXA [Suspect]
     Indication: PRODUCT USED FOR UNKNOWN INDICATION
     Dosage: 1TAB PER DAY
     Route: 065
     Dates: start: 20131206, end: 20140526
  2. KALETRA [Concomitant]
     Route: 065

REACTIONS (2)
  - Myocardial infarction [Recovered/Resolved]
  - Angioplasty [Unknown]
